FAERS Safety Report 8167672-X (Version None)
Quarter: 2012Q1

REPORT INFORMATION
  Report Type: 
  Country: None (occurrence: None)
  Receive Date: 20120227
  Receipt Date: 20120217
  Transmission Date: 20120608
  Serious: Yes (Other)
  Sender: FDA-Public Use
  Company Number: US-BAYER-201015414NA

PATIENT
  Age: 49 Year
  Sex: Female
  Weight: 59.091 kg

DRUGS (8)
  1. YASMIN [Suspect]
     Route: 048
     Dates: start: 20080211, end: 20080222
  2. ZOLOFT [Concomitant]
     Dates: start: 20091001
  3. CALCIUM [Concomitant]
  4. IRON SUPPLEMENT [Concomitant]
     Dates: start: 20080401
  5. IBUPROFEN (ADVIL) [Concomitant]
     Indication: PAIN
  6. HORMONES NOS [Concomitant]
     Indication: ANAEMIA
  7. CLARITIN [Concomitant]
     Dosage: ON AND OFF
     Dates: start: 19900101
  8. ZYRTEC [Concomitant]
     Dosage: ON AND OFF
     Dates: start: 20070101

REACTIONS (3)
  - DEEP VEIN THROMBOSIS [None]
  - OEDEMA PERIPHERAL [None]
  - PAIN IN EXTREMITY [None]
